FAERS Safety Report 5397766-3 (Version None)
Quarter: 2007Q3

REPORT INFORMATION
  Report Type: 
  Country: None (occurrence: None)
  Receive Date: 20070726
  Receipt Date: 20070717
  Transmission Date: 20080115
  Serious: Yes (Disabling, Other)
  Sender: FDA-Public Use
  Company Number: B0478648A

PATIENT
  Sex: Female
  Weight: 64 kg

DRUGS (1)
  1. SEROXAT [Suspect]
     Indication: DEPRESSION
     Dosage: 40MG PER DAY
     Route: 048
     Dates: start: 19951101, end: 20060801

REACTIONS (6)
  - DISABILITY [None]
  - MENTAL DISORDER [None]
  - NERVOUSNESS [None]
  - PANIC ATTACK [None]
  - PERSONALITY CHANGE [None]
  - SELF-INJURIOUS IDEATION [None]
